FAERS Safety Report 20192574 (Version 1)
Quarter: 2021Q4

REPORT INFORMATION
  Report Type: Spontaneous
  Country: TH (occurrence: TH)
  Receive Date: 20211216
  Receipt Date: 20211216
  Transmission Date: 20220303
  Serious: Yes (Other)
  Sender: FDA-Public Use
  Company Number: TH-NOVARTISPH-NVSC2021TH277759

PATIENT
  Sex: Female

DRUGS (2)
  1. RIBOCICLIB [Suspect]
     Active Substance: RIBOCICLIB
     Indication: Hormone receptor positive HER2 negative breast cancer
     Dosage: 600 MG ((200) 3 TAB PO OD WITHOUT MEAL)
     Route: 065
     Dates: start: 20210105, end: 20210214
  2. RIBOCICLIB [Suspect]
     Active Substance: RIBOCICLIB
     Dosage: 400 MG
     Route: 065
     Dates: start: 202106

REACTIONS (12)
  - Electrocardiogram QT prolonged [Unknown]
  - Blood potassium increased [Unknown]
  - Hydronephrosis [Unknown]
  - Haematocrit decreased [Unknown]
  - Aspartate aminotransferase increased [Unknown]
  - Alanine aminotransferase increased [Unknown]
  - Creatinine renal clearance decreased [Unknown]
  - Blood creatine increased [Unknown]
  - Blood sodium decreased [Unknown]
  - Platelet count increased [Unknown]
  - Drug ineffective [Unknown]
  - Herpes zoster [Unknown]
